FAERS Safety Report 9379502 (Version 1)
Quarter: 2013Q3

REPORT INFORMATION
  Report Type: Spontaneous
  Country: US (occurrence: US)
  Receive Date: 20130702
  Receipt Date: 20130702
  Transmission Date: 20140515
  Serious: Yes (Hospitalization)
  Sender: FDA-Public Use
  Company Number: PHEH2013US013388

PATIENT
  Sex: Male

DRUGS (12)
  1. TRILEPTAL [Suspect]
     Indication: CONVULSION
     Dosage: 750 MG, DAILY
     Route: 048
  2. LAMICTAL [Suspect]
     Indication: CONVULSION
     Dosage: 25 MG, QOD
     Dates: start: 20130103
  3. LAMICTAL [Suspect]
     Dosage: 25 MG EVERY 2 WEEKS, UNK
  4. DEPAKOTE ER [Suspect]
     Indication: CONVULSION
     Dosage: 1500 MG, BID
     Route: 048
  5. ACETAMINOPHEN [Suspect]
     Route: 048
  6. TYLENOL [Suspect]
  7. NORDITROPIN [Concomitant]
  8. BUSPAR [Concomitant]
  9. LOVASTATIN [Concomitant]
  10. NIASPAN [Concomitant]
  11. MULTIVITAMINS [Concomitant]
  12. KEPPRA [Concomitant]

REACTIONS (42)
  - Meningitis aseptic [Recovered/Resolved]
  - Nausea [Recovered/Resolved]
  - Pyrexia [Recovered/Resolved]
  - Vomiting [Recovered/Resolved]
  - Lethargy [Recovered/Resolved]
  - Chills [Unknown]
  - Agitation [Unknown]
  - Sinus tachycardia [Unknown]
  - Confusional state [Unknown]
  - Fall [Unknown]
  - Mental status changes [Recovered/Resolved]
  - Tachypnoea [Unknown]
  - Pain [Unknown]
  - Malaise [Unknown]
  - Diarrhoea [Unknown]
  - Abdominal pain [Unknown]
  - Hypertension [Unknown]
  - Headache [Unknown]
  - Meningitis viral [Unknown]
  - Lung neoplasm [Unknown]
  - Pulmonary amyloidosis [Unknown]
  - Cough [Unknown]
  - Pulmonary mass [Unknown]
  - Atelectasis [Unknown]
  - Total lung capacity decreased [Unknown]
  - Sepsis [Unknown]
  - Blood creatine phosphokinase increased [Unknown]
  - Pneumothorax [Unknown]
  - Electrocardiogram T wave inversion [Unknown]
  - Electrocardiogram ST segment depression [Unknown]
  - Hepatitis [Unknown]
  - Transaminases increased [Recovered/Resolved]
  - Liver function test abnormal [Recovered/Resolved]
  - Aspartate aminotransferase increased [Recovered/Resolved]
  - Alanine aminotransferase increased [Recovered/Resolved]
  - Blood bilirubin increased [Recovered/Resolved]
  - Blood alkaline phosphatase increased [Unknown]
  - Metabolic encephalopathy [Unknown]
  - Hyponatraemia [Recovered/Resolved]
  - Anaemia [Unknown]
  - Thrombocytopenia [Recovered/Resolved]
  - White blood cell count decreased [Unknown]
